FAERS Safety Report 7086630-X (Version None)
Quarter: 2010Q4

REPORT INFORMATION
  Report Type: 
  Country: None (occurrence: None)
  Receive Date: 20101105
  Receipt Date: 20101101
  Transmission Date: 20110411
  Serious: Yes (Other)
  Sender: FDA-Public Use
  Company Number: CHPA2009US12467

PATIENT
  Age: 82 Year
  Sex: Female
  Weight: 68.027 kg

DRUGS (4)
  1. VOLTAREN [Suspect]
     Indication: OSTEOARTHRITIS
     Dosage: 2 G, QID
     Route: 061
     Dates: start: 20090528, end: 20101001
  2. CLOBETASOL PROPIONATE [Concomitant]
     Indication: ERYTHEMA
  3. ^INTENSIVE REPAIR^ [Concomitant]
     Indication: SKIN EXFOLIATION
  4. ^INTENSIVE REPAIR^ [Concomitant]
     Indication: THERAPEUTIC SKIN CARE TOPICAL

REACTIONS (9)
  - APPLICATION SITE PAIN [None]
  - APPLICATION SITE PRURITUS [None]
  - APPLICATION SITE RASH [None]
  - ERYTHEMA [None]
  - PRURITUS [None]
  - RASH [None]
  - STASIS DERMATITIS [None]
  - VENOUS OPERATION [None]
  - WRONG TECHNIQUE IN DRUG USAGE PROCESS [None]
